FAERS Safety Report 4705267-8 (Version None)
Quarter: 2005Q2

REPORT INFORMATION
  Report Type: 
  Country: None (occurrence: None)
  Receive Date: 20050629
  Receipt Date: 20050614
  Transmission Date: 20051028
  Serious: Yes (Hospitalization)
  Sender: FDA-Public Use
  Company Number: 2005AL002273

PATIENT
  Age: 49 Year
  Sex: Female

DRUGS (10)
  1. FLUOXETINE [Suspect]
     Dosage: 10 MG
  2. LEVOFLOXACIN [Suspect]
     Indication: PYELONEPHRITIS
     Dosage: 500 MG;  QD
  3. IMIPRAMINE [Suspect]
     Dosage: 50 MG; HS
  4. GABAPENTIN [Concomitant]
  5. PROPRANOLOL [Concomitant]
  6. CRISOPRODOL [Concomitant]
  7. MIRTAZAPINE [Concomitant]
  8. LORATADINE W/PSEUDOEPHEDRINE [Concomitant]
  9. FERROUS SULFATE TAB [Concomitant]
  10. HYDROCHLOROTHIAZIDE [Concomitant]

REACTIONS (5)
  - BLOOD POTASSIUM DECREASED [None]
  - CHEST DISCOMFORT [None]
  - DRUG INTERACTION [None]
  - DYSPNOEA [None]
  - ELECTROCARDIOGRAM QT CORRECTED INTERVAL PROLONGED [None]
